FAERS Safety Report 4800100-8 (Version None)
Quarter: 2005Q4

REPORT INFORMATION
  Report Type: 
  Country: None (occurrence: None)
  Receive Date: 20051017
  Receipt Date: 20051006
  Transmission Date: 20060501
  Serious: Yes (Other)
  Sender: FDA-Public Use
  Company Number: PHBS2005IT14945

PATIENT
  Sex: Male

DRUGS (1)
  1. COTAREG [Suspect]
     Dosage: VALS 80 / HCT 12.5 MG/DAY
     Route: 048

REACTIONS (3)
  - ALOPECIA [None]
  - HAEMATURIA [None]
  - RENAL COLIC [None]
